FAERS Safety Report 25403837 (Version 1)
Quarter: 2025Q2

REPORT INFORMATION
  Report Type: Report from Study
  Country: ES (occurrence: ES)
  Receive Date: 20250606
  Receipt Date: 20250606
  Transmission Date: 20250717
  Serious: Yes (Other)
  Sender: ABBVIE
  Company Number: ES-ABBVIE-6307276

PATIENT
  Sex: Male

DRUGS (1)
  1. UPADACITINIB [Suspect]
     Active Substance: UPADACITINIB
     Indication: Dermatitis
     Route: 048
     Dates: end: 20210913

REACTIONS (6)
  - Prostate cancer [Unknown]
  - Herpes zoster [Unknown]
  - Molluscum contagiosum [Unknown]
  - Unevaluable event [Unknown]
  - Lymphadenopathy [Unknown]
  - Skin lesion [Unknown]

NARRATIVE: CASE EVENT DATE: 20210201
